FAERS Safety Report 23064098 (Version 1)
Quarter: 2023Q4

REPORT INFORMATION
  Report Type: Spontaneous
  Country: DE (occurrence: DE)
  Receive Date: 20231013
  Receipt Date: 20231013
  Transmission Date: 20240109
  Serious: Yes (Other)
  Sender: FDA-Public Use
  Company Number: None

PATIENT
  Sex: Female

DRUGS (1)
  1. DIMETHYL FUMARATE [Suspect]
     Active Substance: DIMETHYL FUMARATE
     Indication: Multiple sclerosis
     Dosage: UNK
     Route: 048
     Dates: start: 20230721, end: 20230918

REACTIONS (4)
  - Multiple sclerosis relapse [Unknown]
  - Skin burning sensation [Unknown]
  - Throat irritation [Unknown]
  - Abdominal pain upper [Unknown]
